FAERS Safety Report 11447914 (Version 1)
Quarter: 2015Q3

REPORT INFORMATION
  Report Type: Spontaneous
  Country: US (occurrence: US)
  Receive Date: 20150831
  Receipt Date: 20150831
  Transmission Date: 20151125
  Serious: No
  Sender: FDA-Public Use
  Company Number: US-ELI_LILLY_AND_COMPANY-US200905000192

PATIENT
  Age: 56 Year
  Sex: Female

DRUGS (5)
  1. CYMBALTA [Suspect]
     Active Substance: DULOXETINE HYDROCHLORIDE
     Indication: PAIN
     Dosage: 60 MG, DAILY (1/D)
     Dates: end: 200904
  2. PERCOCET [Concomitant]
     Active Substance: ACETAMINOPHEN\OXYCODONE HYDROCHLORIDE
  3. SOMA [Concomitant]
     Active Substance: CARISOPRODOL
  4. SYNTHROID [Concomitant]
     Active Substance: LEVOTHYROXINE SODIUM
  5. BONIVA [Concomitant]
     Active Substance: IBANDRONATE SODIUM

REACTIONS (6)
  - Ataxia [Recovering/Resolving]
  - Headache [Recovering/Resolving]
  - Musculoskeletal stiffness [Recovering/Resolving]
  - Dizziness [Recovering/Resolving]
  - Drug withdrawal syndrome [Recovering/Resolving]
  - Nausea [Recovering/Resolving]

NARRATIVE: CASE EVENT DATE: 200904
